FAERS Safety Report 7554035-0 (Version None)
Quarter: 2011Q2

REPORT INFORMATION
  Report Type: 
  Country: None (occurrence: None)
  Receive Date: 20110614
  Receipt Date: 20110614
  Transmission Date: 20111010
  Serious: No
  Sender: FDA-Public Use
  Company Number: None

PATIENT
  Sex: Female
  Weight: 65 kg

DRUGS (1)
  1. TYGACIL [Suspect]
     Dosage: 100MG X1 IV
     Route: 042
     Dates: start: 20110323, end: 20110323

REACTIONS (5)
  - NAUSEA [None]
  - RASH [None]
  - VOMITING [None]
  - RESTLESSNESS [None]
  - DYSKINESIA [None]
